FAERS Safety Report 4379761-6 (Version None)
Quarter: 2004Q2

REPORT INFORMATION
  Report Type: 
  Country: None (occurrence: None)
  Receive Date: 20040617
  Receipt Date: 20040610
  Transmission Date: 20050107
  Serious: Yes (Hospitalization)
  Sender: FDA-Public Use
  Company Number: SE-BRISTOL-MYERS SQUIBB COMPANY-12611794

PATIENT
  Age: 32 Year
  Sex: Female

DRUGS (1)
  1. MITOMYCIN [Suspect]
     Indication: WEGENER'S GRANULOMATOSIS
     Route: 061
     Dates: start: 20030128, end: 20030128

REACTIONS (1)
  - PHARYNGEAL OEDEMA [None]
